FAERS Safety Report 10149752 (Version 1)
Quarter: 2014Q2

REPORT INFORMATION
  Report Type: Spontaneous
  Country: FR (occurrence: FR)
  Receive Date: 20140502
  Receipt Date: 20140502
  Transmission Date: 20141212
  Serious: Yes (Hospitalization)
  Sender: FDA-Public Use
  Company Number: FR-TEVA-477248ISR

PATIENT
  Age: 63 Year
  Sex: Female

DRUGS (5)
  1. FLUOROURACILE TEVA [Suspect]
     Indication: GASTRIC CANCER
     Dosage: 114.2857 MG/M2 DAILY;
     Route: 042
     Dates: start: 20140228
  2. OXALIPLATINE TEVA [Suspect]
     Indication: GASTRIC CANCER
     Dosage: 6.0714 MG/M2 DAILY;
     Route: 042
     Dates: start: 20140228
  3. FOLINATE DE CALICUM [Suspect]
     Indication: GASTRIC CANCER
     Dosage: 28.5714 MG/M2 DAILY;
     Route: 042
     Dates: start: 20140228
  4. ZOPHREN [Concomitant]
  5. SOLUMEDROL [Concomitant]

REACTIONS (3)
  - Pericarditis [Recovering/Resolving]
  - Palpitations [Recovered/Resolved]
  - Chest pain [Unknown]
